FAERS Safety Report 5289572-5 (Version None)
Quarter: 2007Q2

REPORT INFORMATION
  Report Type: 
  Country: None (occurrence: None)
  Receive Date: 20070406
  Receipt Date: 20070326
  Transmission Date: 20071010
  Serious: Yes (Hospitalization)
  Sender: FDA-Public Use
  Company Number: GB-ROCHE-490149

PATIENT
  Age: 74 Year
  Sex: Male

DRUGS (2)
  1. BONVIVA [Suspect]
     Indication: OSTEOPOROSIS
     Route: 048
     Dates: start: 20061113
  2. BONVIVA [Suspect]
     Route: 048
     Dates: start: 20070314

REACTIONS (1)
  - MYOCARDIAL INFARCTION [None]
